FAERS Safety Report 17913110 (Version 1)
Quarter: 2020Q2

REPORT INFORMATION
  Report Type: Spontaneous
  Country: TR (occurrence: TR)
  Receive Date: 20200618
  Receipt Date: 20200618
  Transmission Date: 20200714
  Serious: Yes (Death)
  Sender: FDA-Public Use
  Company Number: TR-MEITHEAL PHARMACEUTICALS-2020MHL00024

PATIENT
  Age: 36 Year
  Sex: Female

DRUGS (3)
  1. CISPLATIN. [Concomitant]
     Active Substance: CISPLATIN
     Dosage: 20 MG/M2 ON DAYS 1-5 EVERY 3 WEEKS
     Route: 065
  2. BLEOMYCIN [Suspect]
     Active Substance: BLEOMYCIN SULFATE
     Indication: CHORIOCARCINOMA
     Dosage: 30 MG (ON DAYS 1,8,AND 15) EVERY 3 WEEKS
     Route: 065
  3. ETOPOSIDE. [Concomitant]
     Active Substance: ETOPOSIDE
     Dosage: 100 MG/M2 ON DAYS 1-5 EVERY 3 WEEKS
     Route: 065

REACTIONS (4)
  - Respiratory failure [Fatal]
  - Toxicity to various agents [Fatal]
  - Pneumonia [Fatal]
  - Pulmonary toxicity [Fatal]
